FAERS Safety Report 18430490 (Version 3)
Quarter: 2021Q2

REPORT INFORMATION
  Report Type: Spontaneous
  Country: US (occurrence: US)
  Receive Date: 20201027
  Receipt Date: 20210624
  Transmission Date: 20210717
  Serious: Yes (Other)
  Sender: FDA-Public Use
  Company Number: US-GILEAD-2020-0501280

PATIENT
  Sex: Male
  Weight: 80.73 kg

DRUGS (20)
  1. PIFELTRO [Concomitant]
     Active Substance: DORAVIRINE
  2. PREZISTA [Concomitant]
     Active Substance: DARUNAVIR ETHANOLATE
  3. ACYCLOVIR SODIUM. [Concomitant]
     Active Substance: ACYCLOVIR SODIUM
  4. ASPIRINE [Concomitant]
     Active Substance: ASPIRIN
  5. HALOPERIDOL. [Concomitant]
     Active Substance: HALOPERIDOL
  6. PRAVASTATIN. [Concomitant]
     Active Substance: PRAVASTATIN
  7. INVIRASE [Concomitant]
     Active Substance: SAQUINAVIR MESYLATE
  8. SUSTIVA [Concomitant]
     Active Substance: EFAVIRENZ
  9. VIDEX [Concomitant]
     Active Substance: DIDANOSINE
  10. TIVICAY [Concomitant]
     Active Substance: DOLUTEGRAVIR SODIUM
  11. VITAMIN D NOS [Concomitant]
     Active Substance: VITAMIN D NOS
  12. ISENTRESS [Concomitant]
     Active Substance: RALTEGRAVIR POTASSIUM
  13. TRUVADA [Suspect]
     Active Substance: EMTRICITABINE\TENOFOVIR DISOPROXIL FUMARATE
     Indication: HIV INFECTION
     Dosage: UNK
     Route: 048
     Dates: start: 200408, end: 201904
  14. EPIVIR [Concomitant]
     Active Substance: LAMIVUDINE
  15. AMOXICILLIN. [Concomitant]
     Active Substance: AMOXICILLIN
  16. NORVIR [Concomitant]
     Active Substance: RITONAVIR
  17. RETROVIR [Concomitant]
     Active Substance: ZIDOVUDINE
  18. OMEPRAZOLE. [Concomitant]
     Active Substance: OMEPRAZOLE
  19. INTELENCE [Concomitant]
     Active Substance: ETRAVIRINE
  20. RESCRIPTOR [Concomitant]
     Active Substance: DELAVIRDINE MESYLATE

REACTIONS (4)
  - Depression [Recovered/Resolved]
  - Osteonecrosis [Not Recovered/Not Resolved]
  - Bone loss [Unknown]
  - Anxiety [Recovered/Resolved]

NARRATIVE: CASE EVENT DATE: 2012
